FAERS Safety Report 8386014-8 (Version None)
Quarter: 2012Q2

REPORT INFORMATION
  Report Type: 
  Country: None (occurrence: None)
  Receive Date: 20120523
  Receipt Date: 20120509
  Transmission Date: 20120825
  Serious: Yes (Other)
  Sender: FDA-Public Use
  Company Number: 2012SP022727

PATIENT
  Age: 22 Year
  Sex: Female
  Weight: 68.5 kg

DRUGS (2)
  1. IMPLANON [Suspect]
  2. IMPLANON [Suspect]
     Indication: CONTRACEPTION
     Dosage: 68 MG; SBDE
     Route: 059
     Dates: start: 20120308

REACTIONS (4)
  - ABORTION INDUCED [None]
  - PREGNANCY WITH IMPLANT CONTRACEPTIVE [None]
  - MENSTRUATION IRREGULAR [None]
  - MATERNAL EXPOSURE DURING PREGNANCY [None]
